FAERS Safety Report 18755931 (Version 2)
Quarter: 2021Q1

REPORT INFORMATION
  Report Type: Spontaneous
  Country: TR (occurrence: TR)
  Receive Date: 20210119
  Receipt Date: 20210126
  Transmission Date: 20210419
  Serious: Yes (Death, Life-Threatening, Other)
  Sender: FDA-Public Use
  Company Number: TR-PFIZER INC-2021017157

PATIENT
  Age: 70 Year
  Sex: Female

DRUGS (2)
  1. METHOTREXATE SODIUM. [Suspect]
     Active Substance: METHOTREXATE SODIUM
     Indication: BING-NEEL SYNDROME
     Dosage: UNK, CYCLIC HIGH?DOSE (3 G/M2)
     Dates: start: 2019
  2. FOLINIC ACID [Concomitant]
     Active Substance: LEUCOVORIN
     Dosage: 15 MG/M2 (FREQ:6 H) (EVERY SIX HOURS)
     Dates: start: 2019

REACTIONS (8)
  - Febrile neutropenia [Fatal]
  - Anaemia [Unknown]
  - Vomiting [Unknown]
  - Leukopenia [Unknown]
  - Drug intolerance [Unknown]
  - Nausea [Unknown]
  - Mucosal inflammation [Unknown]
  - Thrombocytopenia [Unknown]

NARRATIVE: CASE EVENT DATE: 2019
